FAERS Safety Report 5694733-7 (Version None)
Quarter: 2008Q2

REPORT INFORMATION
  Report Type: 
  Country: None (occurrence: None)
  Receive Date: 20080404
  Receipt Date: 20080328
  Transmission Date: 20081010
  Serious: Yes (Hospitalization)
  Sender: FDA-Public Use
  Company Number: US-KINGPHARMUSA00001-K200800378

PATIENT

DRUGS (1)
  1. EPIPEN [Suspect]
     Dosage: UNK, SINGLE
     Route: 030
     Dates: start: 20070701, end: 20070701

REACTIONS (7)
  - ACCIDENTAL EXPOSURE [None]
  - CARDIOVERSION [None]
  - DEPRESSED LEVEL OF CONSCIOUSNESS [None]
  - EXPIRED DRUG ADMINISTERED [None]
  - FEELING ABNORMAL [None]
  - LIP DISORDER [None]
  - PALLOR [None]
